FAERS Safety Report 14224095 (Version 1)
Quarter: 2017Q4

REPORT INFORMATION
  Report Type: Spontaneous
  Country: DE (occurrence: DE)
  Receive Date: 20171126
  Receipt Date: 20171126
  Transmission Date: 20180321
  Serious: Yes (Death, Hospitalization, Other)
  Sender: FDA-Public Use
  Company Number: DE-UNICHEM PHARMACEUTICALS (USA) INC-UCM201711-000286

PATIENT
  Age: 22 Year
  Sex: Female

DRUGS (3)
  1. LORAZEPAM. [Concomitant]
     Active Substance: LORAZEPAM
     Indication: OBSESSIVE THOUGHTS
  2. CEFUROXIM [Concomitant]
     Active Substance: CEFUROXIME
     Indication: PHARYNGITIS
  3. QUETIAPINE. [Suspect]
     Active Substance: QUETIAPINE
     Indication: DELUSION

REACTIONS (11)
  - Sepsis [Fatal]
  - Hypoxia [Not Recovered/Not Resolved]
  - Hypotension [Not Recovered/Not Resolved]
  - Multiple organ dysfunction syndrome [Fatal]
  - Cardiopulmonary failure [Fatal]
  - Metabolic acidosis [Not Recovered/Not Resolved]
  - Tachypnoea [Not Recovered/Not Resolved]
  - Hypotonia [Not Recovered/Not Resolved]
  - Agranulocytosis [Fatal]
  - Pharyngitis [Not Recovered/Not Resolved]
  - Body temperature increased [Not Recovered/Not Resolved]
